FAERS Safety Report 4517699-1 (Version None)
Quarter: 2004Q4

REPORT INFORMATION
  Report Type: 
  Country: None (occurrence: None)
  Receive Date: 20041203
  Receipt Date: 20041124
  Transmission Date: 20050328
  Serious: Yes (Hospitalization)
  Sender: FDA-Public Use
  Company Number: FR-BRISTOL-MYERS SQUIBB COMPANY-12776688

PATIENT
  Age: 54 Year
  Sex: Female

DRUGS (3)
  1. APROVEL TABS 150 MG [Suspect]
     Indication: HYPERTENSION
     Route: 048
     Dates: end: 20040924
  2. LEVOTHYROX [Concomitant]
  3. LIVIAL [Concomitant]
     Dates: end: 20040601

REACTIONS (1)
  - HEPATITIS [None]
